FAERS Safety Report 5225821-7 (Version None)
Quarter: 2007Q1

REPORT INFORMATION
  Report Type: 
  Country: None (occurrence: None)
  Receive Date: 20070130
  Receipt Date: 20070130
  Transmission Date: 20070707
  Serious: Yes (Other)
  Sender: FDA-Public Use
  Company Number: None

PATIENT
  Age: 8 Year
  Sex: Male
  Weight: 34.0198 kg

DRUGS (1)
  1. TAMIFLU [Suspect]
     Indication: INFLUENZA
     Dosage: WHAT WAS REQUIRED   TWICE A DAY
     Dates: start: 20061128, end: 20061201

REACTIONS (9)
  - DEPRESSION [None]
  - DISTURBANCE IN ATTENTION [None]
  - DRUG TOXICITY [None]
  - EDUCATIONAL PROBLEM [None]
  - FEAR [None]
  - NIGHTMARE [None]
  - PHOBIA [None]
  - THINKING ABNORMAL [None]
  - WEIGHT DECREASED [None]
